FAERS Safety Report 8247088-8 (Version None)
Quarter: 2012Q1

REPORT INFORMATION
  Report Type: 
  Country: None (occurrence: None)
  Receive Date: 20120330
  Receipt Date: 20120322
  Transmission Date: 20120608
  Serious: Yes (Hospitalization)
  Sender: FDA-Public Use
  Company Number: DE-ROCHE-1048176

PATIENT
  Sex: Female
  Weight: 60 kg

DRUGS (9)
  1. DELIX (GERMANY) [Concomitant]
     Dates: start: 20120304
  2. METAMIZOLE [Concomitant]
     Indication: HERPES ZOSTER
     Route: 042
  3. XELODA [Suspect]
     Indication: BREAST CANCER
  4. AVASTIN [Suspect]
     Indication: BREAST CANCER
     Dosage: LAST DOSE PROIR TO SAE: 01/MAR/2012
     Route: 042
     Dates: start: 20090812
  5. VINORELBINE TARTRATE [Suspect]
     Indication: BREAST CANCER
     Route: 065
  6. AMLODIPINE [Concomitant]
     Dates: start: 20100331
  7. ACYCLOVIR [Concomitant]
     Dates: start: 20120301, end: 20120308
  8. DELIX (GERMANY) [Concomitant]
     Dates: start: 20100331
  9. BISOPROLOL FUMARATE [Concomitant]
     Dates: start: 20110421

REACTIONS (2)
  - GENERAL PHYSICAL HEALTH DETERIORATION [None]
  - HYPERTENSION [None]
